FAERS Safety Report 5802186-0 (Version None)
Quarter: 2008Q3

REPORT INFORMATION
  Report Type: 
  Country: None (occurrence: None)
  Receive Date: 20080707
  Receipt Date: 20080625
  Transmission Date: 20090109
  Serious: Yes (Hospitalization, Disabling)
  Sender: FDA-Public Use
  Company Number: ES-PFIZER INC-2008046676

PATIENT
  Sex: Male

DRUGS (5)
  1. GENOTROPIN [Suspect]
     Indication: HYPOPITUITARISM
     Dosage: DAILY DOSE:.5MG-FREQ:DAILY
     Route: 058
     Dates: start: 19980617, end: 20050201
  2. LEVOTHYROXINE SODIUM [Concomitant]
     Dosage: DAILY DOSE:150MCG
  3. HYDROCORTISONE [Concomitant]
  4. SIMVASTATIN [Concomitant]
  5. ENALAPRIL MALEATE [Concomitant]
     Dosage: DAILY DOSE:20MG

REACTIONS (1)
  - TUMOUR FLARE [None]
